FAERS Safety Report 16665073 (Version 1)
Quarter: 2019Q3

REPORT INFORMATION
  Report Type: Spontaneous
  Country: US (occurrence: US)
  Receive Date: 20190803
  Receipt Date: 20190803
  Transmission Date: 20191004
  Serious: Yes (Other)
  Sender: FDA-Public Use
  Company Number: US-ACCORD-072881

PATIENT
  Age: 57 Year
  Sex: Female
  Weight: 87.54 kg

DRUGS (21)
  1. PROCHLORPERAZINE. [Concomitant]
     Active Substance: PROCHLORPERAZINE
  2. ZOFRAN [Concomitant]
     Active Substance: ONDANSETRON HYDROCHLORIDE
  3. DOCETAXEL ACCORD [Suspect]
     Active Substance: DOCETAXEL
     Indication: BREAST CANCER
     Dosage: NUMBER OF CYCLES: 10
     Dates: start: 20150909, end: 20151111
  4. VALIUM [Concomitant]
     Active Substance: DIAZEPAM
     Dates: start: 200705, end: 2015
  5. CEFUROXIME. [Concomitant]
     Active Substance: CEFUROXIME
     Dates: start: 201303
  6. TIZANIDINE. [Concomitant]
     Active Substance: TIZANIDINE
     Dates: start: 1996
  7. LUNESTA [Concomitant]
     Active Substance: ESZOPICLONE
  8. LORAZEPAM. [Concomitant]
     Active Substance: LORAZEPAM
  9. HYDROCHLOROTHIAZIDE/TRIAMTERENE [Concomitant]
     Dates: start: 201408, end: 201408
  10. PRAMIPEXOLE/PRAMIPEXOLE DIHYDROCHLORIDE [Concomitant]
     Dates: start: 201304
  11. MECLIZINE [Concomitant]
     Active Substance: MECLIZINE HYDROCHLORIDE
  12. HYDROCHLOROTHIAZIDE. [Concomitant]
     Active Substance: HYDROCHLOROTHIAZIDE
  13. DEXAMETHASONE. [Concomitant]
     Active Substance: DEXAMETHASONE
  14. ALOXI [Concomitant]
     Active Substance: PALONOSETRON HYDROCHLORIDE
  15. WELLBUTRIN [Concomitant]
     Active Substance: BUPROPION HYDROCHLORIDE
  16. ONDANSETRON [Concomitant]
     Active Substance: ONDANSETRON
  17. ATENOLOL/ATENOLOL HYDROCHLORIDE [Concomitant]
     Dates: start: 201205
  18. MELOXICAM. [Concomitant]
     Active Substance: MELOXICAM
     Dates: start: 201310
  19. BENZOCAINE/PHENAZONE [Concomitant]
     Dates: start: 201310
  20. DOXORUBICIN [Suspect]
     Active Substance: DOXORUBICIN
     Indication: BREAST CANCER
     Dosage: NUMBER OF CYCLES: 10
     Dates: start: 201510, end: 201511
  21. CYCLOPHOSPHAMIDE. [Suspect]
     Active Substance: CYCLOPHOSPHAMIDE
     Indication: BREAST CANCER
     Dosage: NUMBER OF CYCLES: 10
     Dates: start: 201510, end: 201511

REACTIONS (1)
  - Alopecia [Not Recovered/Not Resolved]

NARRATIVE: CASE EVENT DATE: 2016
